FAERS Safety Report 6602706-2 (Version None)
Quarter: 2010Q1

REPORT INFORMATION
  Report Type: 
  Country: None (occurrence: None)
  Receive Date: 20100218
  Receipt Date: 20100209
  Transmission Date: 20100710
  Serious: Yes (Other)
  Sender: FDA-Public Use
  Company Number: 2010EU000520

PATIENT
  Age: 28 Year
  Sex: Male

DRUGS (4)
  1. PROGRAF [Suspect]
     Indication: LUNG TRANSPLANT
     Dosage: 1.5 MG, BID, ORAL
     Route: 047
  2. PROGRAF [Suspect]
     Indication: RENAL TRANSPLANT
     Dosage: 1.5 MG, BID, ORAL
     Route: 047
  3. CELLCEPT [Concomitant]
  4. PREDNISONE [Concomitant]

REACTIONS (7)
  - ASPERGILLOSIS [None]
  - HAEMODIALYSIS [None]
  - OFF LABEL USE [None]
  - OVERDOSE [None]
  - RENAL CANCER [None]
  - RENAL FAILURE [None]
  - RENAL TRANSPLANT [None]
